FAERS Safety Report 23662493 (Version 3)
Quarter: 2024Q2

REPORT INFORMATION
  Report Type: Spontaneous
  Country: FR (occurrence: FR)
  Receive Date: 20240322
  Receipt Date: 20240522
  Transmission Date: 20240716
  Serious: Yes (Other)
  Sender: FDA-Public Use
  Company Number: FR-PFIZER INC-202400059291

PATIENT
  Age: 53 Year
  Sex: Male

DRUGS (1)
  1. REMICADE [Suspect]
     Active Substance: INFLIXIMAB
     Indication: Whipple^s disease
     Dosage: UNK
     Route: 041

REACTIONS (3)
  - Immune recovery uveitis [Recovering/Resolving]
  - Off label use [Unknown]
  - Drug ineffective [Unknown]
